FAERS Safety Report 17331957 (Version 1)
Quarter: 2020Q1

REPORT INFORMATION
  Report Type: Spontaneous
  Country: US (occurrence: US)
  Receive Date: 20200127
  Receipt Date: 20200127
  Transmission Date: 20200409
  Serious: No
  Sender: FDA-Public Use
  Company Number: US-ARBOR PHARMACEUTICALS, LLC-US-2019ARB001693

PATIENT
  Age: 9 Year
  Sex: Male

DRUGS (1)
  1. TRIPTODUR [Suspect]
     Active Substance: TRIPTORELIN
     Indication: PRECOCIOUS PUBERTY
     Dosage: 22.5 MG, SINGLE, Q 24 WEEKS
     Route: 065
     Dates: start: 20181211

REACTIONS (2)
  - Incorrect dose administered [Unknown]
  - Syringe issue [Unknown]

NARRATIVE: CASE EVENT DATE: 20191209
